FAERS Safety Report 16840868 (Version 3)
Quarter: 2019Q4

REPORT INFORMATION
  Report Type: Spontaneous
  Country: JP (occurrence: JP)
  Receive Date: 20190923
  Receipt Date: 20191018
  Transmission Date: 20200122
  Serious: Yes (Hospitalization, Other)
  Sender: FDA-Public Use
  Company Number: JP-JNJFOC-20190927912

PATIENT
  Age: 75 Year
  Sex: Male

DRUGS (13)
  1. SWORD [Concomitant]
     Active Substance: PRULIFLOXACIN
     Route: 048
  2. SIGMART [Concomitant]
     Active Substance: NICORANDIL
     Route: 065
  3. STELARA [Suspect]
     Active Substance: USTEKINUMAB
     Indication: PSORIASIS
     Route: 058
     Dates: start: 20151001, end: 20190627
  4. TAKEPRON [Concomitant]
     Active Substance: LANSOPRAZOLE
     Route: 065
  5. BAYASPIRIN [Concomitant]
     Active Substance: ASPIRIN
     Route: 048
  6. GASLON [Concomitant]
     Active Substance: IRSOGLADINE MALEATE
     Dosage: PERORAL MEDICINE
     Route: 048
  7. AVOLVE [Concomitant]
     Active Substance: DUTASTERIDE
     Route: 048
  8. ACTOS [Concomitant]
     Active Substance: PIOGLITAZONE HYDROCHLORIDE
     Dosage: PERORAL MEDICINE
     Route: 048
  9. MYSLEE [Concomitant]
     Active Substance: ZOLPIDEM TARTRATE
     Dosage: PERORAL MEDICINE
     Route: 048
  10. OLMETEC [Concomitant]
     Active Substance: OLMESARTAN MEDOXOMIL
     Route: 048
  11. AMLODIPINE BESILATE [Concomitant]
     Active Substance: AMLODIPINE BESYLATE
     Dosage: PERORAL MEDICINE
     Route: 048
  12. URIEF [Concomitant]
     Active Substance: SILODOSIN
     Dosage: PERORAL MEDICINE
     Route: 048
  13. LIPIDIL [Concomitant]
     Active Substance: FENOFIBRATE
     Dosage: PERORAL MEDICINE
     Route: 048

REACTIONS (1)
  - Bladder cancer [Recovering/Resolving]

NARRATIVE: CASE EVENT DATE: 20190129
